FAERS Safety Report 9521592 (Version 1)
Quarter: 2013Q3

REPORT INFORMATION
  Report Type: Spontaneous
  Country: None (occurrence: None)
  Receive Date: 20130911
  Receipt Date: 20130911
  Transmission Date: 20140515
  Serious: Yes (Hospitalization)
  Sender: FDA-Public Use
  Company Number: B0921422A

PATIENT
  Sex: Male

DRUGS (4)
  1. ABACAVIR SULPHATE [Suspect]
     Indication: HIV INFECTION
     Dosage: 300 MG/ TWICE PER DAY / U NKNOWN
     Dates: start: 200501
  2. LAMIVUDINE [Suspect]
     Indication: HIV INFECTION
     Dosage: 150 MG / TWICE PER DAY / UNKNOWN
     Dates: start: 200501
  3. EFAVIRENZ [Suspect]
     Indication: HIV INFECTION
     Dosage: 600 MG / AT NIGHT / UNKNOWN
  4. CO-TRIMOXAZOLE [Concomitant]

REACTIONS (7)
  - Myositis [None]
  - Erectile dysfunction [None]
  - Skin irritation [None]
  - Malaise [None]
  - Nausea [None]
  - Myalgia [None]
  - Transaminases increased [None]
